FAERS Safety Report 9855827 (Version 1)
Quarter: 2014Q1

REPORT INFORMATION
  Report Type: Spontaneous
  Country: US (occurrence: US)
  Receive Date: 20140130
  Receipt Date: 20140130
  Transmission Date: 20141002
  Serious: No
  Sender: FDA-Public Use
  Company Number: US-009507513-1401USA011593

PATIENT
  Age: 39 Year
  Sex: Male

DRUGS (4)
  1. SAPHRIS [Suspect]
     Indication: BIPOLAR DISORDER
     Dosage: 5 MG, QD (FOR 2 WEEKS), STRENGTH: 5MG, FORMULATION: RAPID DISSOLVE 10.
     Route: 060
     Dates: start: 201311, end: 2013
  2. SAPHRIS [Suspect]
     Indication: SCHIZOID PERSONALITY DISORDER
     Dosage: 5 MG, BID, STRENGTH: 5MG, FORMULATION: RAPID DISSOLVE 10.
     Route: 060
     Dates: start: 2013
  3. SAPHRIS [Suspect]
     Dosage: 10 MG, BID, STRENGTH: 10 MG, FORMULATION: RAPID DISSOLVE 10.
     Route: 060
     Dates: start: 2013
  4. SAPHRIS [Suspect]
     Dosage: 5 MG, BID, STRENGTH: 5MG, FORMULATION: RAPID DISSOLVE 10.
     Route: 060

REACTIONS (5)
  - Retching [Unknown]
  - Underdose [Unknown]
  - Drug dispensing error [Unknown]
  - Product taste abnormal [Unknown]
  - Somnolence [Unknown]
